FAERS Safety Report 21379361 (Version 2)
Quarter: 2023Q1

REPORT INFORMATION
  Report Type: Report from Study
  Country: CA (occurrence: CA)
  Receive Date: 20220927
  Receipt Date: 20230207
  Transmission Date: 20230418
  Serious: Yes (Hospitalization, Other)
  Sender: FDA-Public Use
  Company Number: CA-ABBVIE-4129951

PATIENT
  Age: 20 Year
  Sex: Male

DRUGS (3)
  1. RINVOQ [Suspect]
     Active Substance: UPADACITINIB
     Indication: Crohn^s disease
     Route: 048
     Dates: start: 20220908
  2. RINVOQ [Suspect]
     Active Substance: UPADACITINIB
     Indication: Crohn^s disease
     Route: 048
     Dates: start: 202301
  3. RINVOQ [Suspect]
     Active Substance: UPADACITINIB
     Indication: Crohn^s disease
     Dosage: START DATE: 2023
     Route: 048

REACTIONS (9)
  - Limb injury [Unknown]
  - Off label use [Unknown]
  - Abdominal pain [Recovering/Resolving]
  - Overdose [Unknown]
  - Malaise [Unknown]
  - Oropharyngeal pain [Unknown]
  - Viral infection [Unknown]
  - Nasal congestion [Unknown]
  - Pyrexia [Unknown]

NARRATIVE: CASE EVENT DATE: 20230101
